FAERS Safety Report 8002330-3 (Version None)
Quarter: 2011Q4

REPORT INFORMATION
  Report Type: 
  Country: None (occurrence: None)
  Receive Date: 20111222
  Receipt Date: 20110427
  Transmission Date: 20120403
  Serious: No
  Sender: FDA-Public Use
  Company Number: US-GLAXOSMITHKLINE-A0924742A

PATIENT
  Age: 47 Year
  Sex: Male

DRUGS (1)
  1. COMMIT [Suspect]
     Indication: EX-TOBACCO USER
     Dates: start: 20110401

REACTIONS (2)
  - ABDOMINAL DISCOMFORT [None]
  - FLATULENCE [None]
